FAERS Safety Report 6613753-9 (Version None)
Quarter: 2010Q1

REPORT INFORMATION
  Report Type: 
  Country: None (occurrence: None)
  Receive Date: 20100225
  Receipt Date: 20100218
  Transmission Date: 20100710
  Serious: Yes (Other)
  Sender: FDA-Public Use
  Company Number: 2010SP010490

PATIENT
  Sex: Male

DRUGS (1)
  1. COPPERTONE SPORT CONTINUOUS SPRAY SPF 60 (AVOBENZONE/HOMOSALATE/OCTISA [Suspect]
     Indication: DRUG USE FOR UNKNOWN INDICATION
     Dosage: TOP
     Route: 061

REACTIONS (3)
  - BLISTER [None]
  - SKIN EXFOLIATION [None]
  - SUNBURN [None]
